FAERS Safety Report 18718145 (Version 2)
Quarter: 2021Q1

REPORT INFORMATION
  Report Type: Spontaneous
  Country: US (occurrence: US)
  Receive Date: 20210108
  Receipt Date: 20210302
  Transmission Date: 20210419
  Serious: No
  Sender: FDA-Public Use
  Company Number: US-BIOVITRUM-2021US0199

PATIENT
  Sex: Male
  Weight: 9 kg

DRUGS (7)
  1. LOVENOX [Concomitant]
     Active Substance: ENOXAPARIN SODIUM
     Dosage: 30MG/0.3ML SYRINGE
  2. DIURIL [Concomitant]
     Active Substance: CHLOROTHIAZIDE
     Dosage: 250 MG/5ML ORAL SUSP
  3. FUROSEMIDE. [Concomitant]
     Active Substance: FUROSEMIDE
  4. SILDENAFIL CITRATE. [Concomitant]
     Active Substance: SILDENAFIL CITRATE
  5. SYNAGIS [Suspect]
     Active Substance: PALIVIZUMAB
     Indication: ANOMALOUS PULMONARY VENOUS CONNECTION
     Route: 030
     Dates: start: 202012
  6. VITAMIN D3 [Concomitant]
     Active Substance: CHOLECALCIFEROL
     Dosage: 10(400)/ML
  7. PEPCID [Concomitant]
     Active Substance: FAMOTIDINE

REACTIONS (1)
  - Weight decreased [Unknown]
